FAERS Safety Report 16849184 (Version 1)
Quarter: 2019Q3

REPORT INFORMATION
  Report Type: Spontaneous
  Country: US (occurrence: US)
  Receive Date: 20190925
  Receipt Date: 20190925
  Transmission Date: 20191005
  Serious: No
  Sender: FDA-Public Use
  Company Number: US-DRREDDYS-USA/USA/19/0114197

PATIENT
  Sex: Male
  Weight: 99 kg

DRUGS (1)
  1. RANITIDINE CAPSULES 150 MG [Suspect]
     Active Substance: RANITIDINE
     Indication: DYSPEPSIA
     Dosage: SWALLOW 1 TABLET WITH A GLASS OF WATER 30 TO 60 MINUTES BEFORE EATING FOOD OR DINKING BEVERAGES
     Route: 048
     Dates: start: 20190804, end: 20190909

REACTIONS (3)
  - Product odour abnormal [Unknown]
  - Dizziness [Unknown]
  - Asthenia [Unknown]
